FAERS Safety Report 21992471 (Version 1)
Quarter: 2023Q1

REPORT INFORMATION
  Report Type: Report from Study
  Country: US (occurrence: US)
  Receive Date: 20230215
  Receipt Date: 20230215
  Transmission Date: 20230417
  Serious: Yes (Death, Other)
  Sender: FDA-Public Use
  Company Number: US-SUN PHARMACEUTICAL INDUSTRIES LTD-2023R1-378286

PATIENT
  Age: 69 Year
  Sex: Female

DRUGS (1)
  1. AMITRIPTYLINE [Suspect]
     Active Substance: AMITRIPTYLINE
     Indication: Product used for unknown indication
     Dosage: UNK
     Route: 065

REACTIONS (7)
  - Toxicity to various agents [Fatal]
  - Depressed level of consciousness [Fatal]
  - Electrocardiogram QT prolonged [Fatal]
  - Electrocardiogram QRS complex prolonged [Fatal]
  - Bradycardia [Fatal]
  - Hypotension [Fatal]
  - Brain death [Fatal]
